FAERS Safety Report 22390068 (Version 2)
Quarter: 2023Q2

REPORT INFORMATION
  Report Type: Report from Study
  Country: US (occurrence: US)
  Receive Date: 20230531
  Receipt Date: 20230609
  Transmission Date: 20230721
  Serious: Yes (Hospitalization)
  Sender: FDA-Public Use
  Company Number: US-BAYER-2023A073750

PATIENT
  Age: 2 Year
  Sex: Female

DRUGS (5)
  1. VITRAKVI [Suspect]
     Active Substance: LAROTRECTINIB
     Indication: Brain neoplasm
     Dosage: 2.6 ML, BID
     Route: 048
     Dates: start: 20230503
  2. VITRAKVI [Suspect]
     Active Substance: LAROTRECTINIB
     Indication: Brain neoplasm
     Dosage: 2.6 ML, BID
     Route: 048
     Dates: start: 20230601
  3. IBUPROFEN [Concomitant]
     Active Substance: IBUPROFEN
  4. ACETAMINOPHEN [Concomitant]
     Active Substance: ACETAMINOPHEN
  5. ONDANSETRON [Concomitant]
     Active Substance: ONDANSETRON

REACTIONS (10)
  - Rash [Recovering/Resolving]
  - Joint swelling [Recovering/Resolving]
  - Pain [None]
  - Erythema [None]
  - Skin warm [None]
  - Inflammation [None]
  - Viral infection [None]
  - Diarrhoea [Recovering/Resolving]
  - Faeces hard [Recovering/Resolving]
  - Eating disorder [Recovering/Resolving]

NARRATIVE: CASE EVENT DATE: 20230519
